FAERS Safety Report 22784437 (Version 5)
Quarter: 2024Q1

REPORT INFORMATION
  Report Type: Spontaneous
  Country: US (occurrence: US)
  Receive Date: 20230803
  Receipt Date: 20240122
  Transmission Date: 20240410
  Serious: No
  Sender: FDA-Public Use
  Company Number: US-BIOGEN-2023BI01218706

PATIENT
  Age: 55 Year
  Sex: Female

DRUGS (1)
  1. QALSODY [Suspect]
     Active Substance: TOFERSEN
     Indication: Amyotrophic lateral sclerosis
     Route: 050
     Dates: start: 20230629

REACTIONS (8)
  - Post lumbar puncture syndrome [Recovered/Resolved]
  - Post procedural complication [Unknown]
  - Secretion discharge [Unknown]
  - Procedural anxiety [Not Recovered/Not Resolved]
  - Procedural pain [Not Recovered/Not Resolved]
  - Vomiting [Unknown]
  - Dyspnoea [Unknown]
  - Coccydynia [Not Recovered/Not Resolved]

NARRATIVE: CASE EVENT DATE: 20230726
